FAERS Safety Report 6201997-X (Version None)
Quarter: 2009Q2

REPORT INFORMATION
  Report Type: 
  Country: None (occurrence: None)
  Receive Date: 20090526
  Receipt Date: 20090515
  Transmission Date: 20091009
  Serious: Yes (Hospitalization)
  Sender: FDA-Public Use
  Company Number: A0785674A

PATIENT
  Age: 56 Year
  Sex: Female
  Weight: 118.2 kg

DRUGS (1)
  1. AVANDIA [Suspect]
     Indication: TYPE 2 DIABETES MELLITUS
     Dosage: 8MG PER DAY
     Route: 048
     Dates: start: 20000601, end: 20040322

REACTIONS (5)
  - AMNESIA [None]
  - CORONARY ARTERY DISEASE [None]
  - DYSPNOEA [None]
  - MOBILITY DECREASED [None]
  - MYOCARDIAL INFARCTION [None]
